FAERS Safety Report 14362068 (Version 1)
Quarter: 2018Q1

REPORT INFORMATION
  Report Type: Spontaneous
  Country: US (occurrence: US)
  Receive Date: 20180108
  Receipt Date: 20180108
  Transmission Date: 20180509
  Serious: No
  Sender: FDA-Public Use
  Company Number: US-AMGEN-USASP2018001241

PATIENT
  Sex: Female

DRUGS (1)
  1. ENBREL [Suspect]
     Active Substance: ETANERCEPT
     Indication: PSORIASIS
     Dosage: 50 MG, 2 TIMES/WK
     Route: 065
     Dates: start: 20171219

REACTIONS (5)
  - Nasopharyngitis [Not Recovered/Not Resolved]
  - Injection site rash [Unknown]
  - Injection site warmth [Unknown]
  - Decreased immune responsiveness [Unknown]
  - Injection site erythema [Unknown]

NARRATIVE: CASE EVENT DATE: 201712
